FAERS Safety Report 17463256 (Version 2)
Quarter: 2020Q1

REPORT INFORMATION
  Report Type: Spontaneous
  Country: US (occurrence: US)
  Receive Date: 20200226
  Receipt Date: 20200325
  Transmission Date: 20200409
  Serious: No
  Sender: FDA-Public Use
  Company Number: US-GLAXOSMITHKLINE-US2020031984

PATIENT
  Sex: Female

DRUGS (1)
  1. ABREVA [Suspect]
     Active Substance: DOCOSANOL
     Indication: ORAL HERPES
     Dosage: UNK
     Dates: start: 20200219

REACTIONS (6)
  - Expired product administered [Unknown]
  - Glossodynia [Unknown]
  - Accidental exposure to product [Unknown]
  - Oral pain [Unknown]
  - Dysgeusia [Unknown]
  - Oral discomfort [Unknown]

NARRATIVE: CASE EVENT DATE: 20200220
